FAERS Safety Report 8263038-2 (Version None)
Quarter: 2012Q2

REPORT INFORMATION
  Report Type: 
  Country: None (occurrence: None)
  Receive Date: 20120405
  Receipt Date: 20120328
  Transmission Date: 20120825
  Serious: Yes (Other)
  Sender: FDA-Public Use
  Company Number: US-BAYER-2012-007891

PATIENT
  Age: 16 Year
  Sex: Female
  Weight: 66.667 kg

DRUGS (1)
  1. YAZ [Suspect]
     Indication: ACNE
     Dosage: UNK
     Route: 048
     Dates: start: 20110101

REACTIONS (4)
  - VOMITING [None]
  - VAGINAL HAEMORRHAGE [None]
  - DYSMENORRHOEA [None]
  - SYNCOPE [None]
